FAERS Safety Report 6746953-8 (Version None)
Quarter: 2010Q2

REPORT INFORMATION
  Report Type: 
  Country: None (occurrence: None)
  Receive Date: 20100528
  Receipt Date: 20091120
  Transmission Date: 20101027
  Serious: No
  Sender: FDA-Public Use
  Company Number: US-ASTRAZENECA-2009SE31777

PATIENT
  Sex: Female

DRUGS (7)
  1. PRILOSEC OTC [Suspect]
     Indication: GASTROOESOPHAGEAL REFLUX DISEASE
     Route: 048
  2. ZETIA [Concomitant]
     Dosage: UNKNOWN
  3. NEUROTIN                           /00949202/ [Concomitant]
     Dosage: UNKNOWN
  4. BLOOD PRESSURE MEDICATION [Concomitant]
     Dosage: UNKNOWN
  5. CARBIDOL [Concomitant]
     Dosage: UNKNOWN
  6. LAZDOPA [Concomitant]
     Dosage: UNKNOWN
  7. THYROID THERAPY [Concomitant]
     Dosage: UNKNOWN

REACTIONS (4)
  - DRUG INEFFECTIVE [None]
  - DYSPEPSIA [None]
  - INCORRECT DOSE ADMINISTERED [None]
  - NAUSEA [None]
